FAERS Safety Report 19110773 (Version 13)
Quarter: 2023Q1

REPORT INFORMATION
  Report Type: Spontaneous
  Country: CA (occurrence: CA)
  Receive Date: 20210409
  Receipt Date: 20230317
  Transmission Date: 20230418
  Serious: Yes (Hospitalization, Other)
  Sender: FDA-Public Use
  Company Number: CA-CELLTRION INC.-2020CA034870

PATIENT

DRUGS (9)
  1. INFLECTRA [Suspect]
     Active Substance: INFLIXIMAB-DYYB
     Indication: Colitis ulcerative
     Dosage: 300 MG AT 0, 2 AND 6 WEEKS AND THEN EVERY 8 WEEKS
     Route: 042
     Dates: start: 20201221
  2. INFLECTRA [Suspect]
     Active Substance: INFLIXIMAB-DYYB
     Dosage: 300 MG 0, 2 AND 6 WEEKS AND THEN EVERY 8 WEEKS
     Route: 042
     Dates: start: 20210105
  3. INFLECTRA [Suspect]
     Active Substance: INFLIXIMAB-DYYB
     Dosage: 300 MG 0, 2 AND 6 WEEKS AND THEN EVERY 8 WEEKS
     Route: 042
     Dates: start: 20210202, end: 20210202
  4. INFLECTRA [Suspect]
     Active Substance: INFLIXIMAB-DYYB
     Dosage: 5 MG/KG (300 MG), EVERY 4 WEEKS
     Route: 042
     Dates: start: 20210302, end: 20210302
  5. INFLECTRA [Suspect]
     Active Substance: INFLIXIMAB-DYYB
     Dosage: 600 MG EVERY 4 WEEKS
     Route: 042
     Dates: start: 20210330
  6. INFLECTRA [Suspect]
     Active Substance: INFLIXIMAB-DYYB
     Dosage: 600 MG EVERY 4 WEEKS
     Route: 042
     Dates: start: 20210428
  7. INFLECTRA [Suspect]
     Active Substance: INFLIXIMAB-DYYB
     Dosage: 600 MG EVERY 4 WEEKS
     Route: 042
     Dates: start: 20210525
  8. INFLECTRA [Suspect]
     Active Substance: INFLIXIMAB-DYYB
     Dosage: 600 MG EVERY 4 WEEKS
     Route: 042
     Dates: start: 20210622, end: 20210622
  9. INFLECTRA [Suspect]
     Active Substance: INFLIXIMAB-DYYB
     Dosage: 600 MG EVERY 4 WEEKS
     Route: 042
     Dates: start: 20210703, end: 20210819

REACTIONS (15)
  - Pain [Not Recovered/Not Resolved]
  - Colitis ulcerative [Unknown]
  - Feeling hot [Recovered/Resolved]
  - Dizziness [Recovered/Resolved]
  - Nausea [Recovering/Resolving]
  - Off label use [Unknown]
  - Drug level below therapeutic [Not Recovered/Not Resolved]
  - Heart rate decreased [Recovered/Resolved]
  - Condition aggravated [Recovering/Resolving]
  - Lymphocyte count increased [Unknown]
  - Blood test abnormal [Not Recovered/Not Resolved]
  - Red cell distribution width increased [Unknown]
  - Immature granulocyte count increased [Unknown]
  - Platelet count abnormal [Unknown]
  - Loss of therapeutic response [Unknown]

NARRATIVE: CASE EVENT DATE: 20201221
